FAERS Safety Report 6692562-9 (Version None)
Quarter: 2010Q2

REPORT INFORMATION
  Report Type: 
  Country: None (occurrence: None)
  Receive Date: 20100422
  Receipt Date: 20100413
  Transmission Date: 20101027
  Serious: Yes (Other)
  Sender: FDA-Public Use
  Company Number: FI-PFIZER INC-2010046145

PATIENT
  Age: 51 Year
  Sex: Male

DRUGS (2)
  1. DALACIN [Suspect]
     Indication: TOOTH EXTRACTION
     Dosage: UNK
  2. V-PENICILLIN [Suspect]
     Indication: TOOTH EXTRACTION
     Dosage: UNK

REACTIONS (2)
  - SWELLING FACE [None]
  - URTICARIA [None]
